FAERS Safety Report 11600294 (Version 1)
Quarter: 2015Q3

REPORT INFORMATION
  Report Type: Spontaneous
  Country: US (occurrence: US)
  Receive Date: 20150916
  Receipt Date: 20150916
  Transmission Date: 20151125
  Serious: No
  Sender: FDA-Public Use
  Company Number: US-ELI_LILLY_AND_COMPANY-US201407001065

PATIENT
  Sex: Female

DRUGS (5)
  1. HUMALOG [Suspect]
     Active Substance: INSULIN LISPRO
     Indication: TYPE 2 DIABETES MELLITUS
     Dosage: 73 U, QD
     Route: 065
     Dates: start: 201403
  2. HUMALOG [Suspect]
     Active Substance: INSULIN LISPRO
     Dosage: 73 U, QD
     Route: 065
     Dates: start: 201403
  3. HUMALOG [Suspect]
     Active Substance: INSULIN LISPRO
     Dosage: 73 U, QD
     Route: 065
     Dates: start: 201403
  4. LEVEMIR [Concomitant]
     Active Substance: INSULIN DETEMIR
     Dosage: UNK UNK, EACH EVENING
     Route: 065
  5. HUMALOG [Suspect]
     Active Substance: INSULIN LISPRO
     Dosage: 73 U, QD
     Route: 065
     Dates: start: 201403

REACTIONS (2)
  - Blood glucose increased [Unknown]
  - Visual acuity reduced [Unknown]
